FAERS Safety Report 12358920 (Version 1)
Quarter: 2016Q2

REPORT INFORMATION
  Report Type: Spontaneous
  Country: US (occurrence: None)
  Receive Date: 20160511
  Receipt Date: 20160511
  Transmission Date: 20160815
  Serious: Yes (Other)
  Sender: FDA-Public Use
  Company Number: None

PATIENT
  Age: 55 Year
  Sex: Female
  Weight: 65.77 kg

DRUGS (1)
  1. PROPOFOL. [Suspect]
     Active Substance: PROPOFOL
     Indication: ANAESTHESIA
     Dosage: 130 INJECTION(S) DRIP DURING SURGER
     Dates: start: 20160128, end: 20160128

REACTIONS (10)
  - Muscle contractions involuntary [None]
  - Burning sensation [None]
  - Overdose [None]
  - Muscle rigidity [None]
  - Blood pressure decreased [None]
  - Dyspnoea [None]
  - Oxygen saturation decreased [None]
  - Vascular rupture [None]
  - Pain in extremity [None]
  - Hypersensitivity [None]

NARRATIVE: CASE EVENT DATE: 20160128
